FAERS Safety Report 9953571 (Version 3)
Quarter: 2014Q2

REPORT INFORMATION
  Report Type: Report from Study
  Country: GB (occurrence: GB)
  Receive Date: 20140304
  Receipt Date: 20140512
  Transmission Date: 20141212
  Serious: Yes (Hospitalization)
  Sender: FDA-Public Use
  Company Number: GB-BRISTOL-MYERS SQUIBB COMPANY-20299996

PATIENT
  Age: 63 Year
  Sex: Female

DRUGS (11)
  1. ABATACEPT SUBQ INJECTION 125MG/ML [Suspect]
     Indication: RHEUMATOID ARTHRITIS
     Route: 058
  2. PARACETAMOL [Concomitant]
     Dosage: TABS
     Route: 048
  3. PHENYTOIN [Concomitant]
     Route: 048
  4. PHENOBARBITAL [Concomitant]
     Dosage: TABS
  5. FERROUS SULFATE [Concomitant]
     Route: 048
  6. PREDNISOLONE [Concomitant]
     Route: 048
  7. METHOTREXATE [Concomitant]
     Route: 048
  8. FOLIC ACID [Concomitant]
     Route: 048
  9. CALCIUM [Concomitant]
     Dosage: 1 DF=1 TABS
  10. VITAMIN D3 [Concomitant]
     Route: 048
  11. VITAMIN D3 [Concomitant]
     Route: 048

REACTIONS (4)
  - Lacunar infarction [Unknown]
  - Gallbladder perforation [Unknown]
  - Drug dose omission [Unknown]
  - Anaemia [Unknown]
